FAERS Safety Report 25960376 (Version 2)
Quarter: 2025Q4

REPORT INFORMATION
  Report Type: Report from Study
  Country: US (occurrence: US)
  Receive Date: 20251026
  Receipt Date: 20251104
  Transmission Date: 20260117
  Serious: Yes (Other)
  Sender: ABBVIE
  Company Number: US-ABBVIE-6513164

PATIENT
  Age: 63 Year
  Sex: Male

DRUGS (1)
  1. CREON [Suspect]
     Active Substance: PANCRELIPASE AMYLASE\PANCRELIPASE LIPASE\PANCRELIPASE PROTEASE
     Indication: Pancreatic failure
     Route: 048
     Dates: start: 2020

REACTIONS (8)
  - Cholelithiasis [Unknown]
  - Hernia [Unknown]
  - Diabetes mellitus [Not Recovered/Not Resolved]
  - Myocardial infarction [Unknown]
  - Pancreatic disorder [Not Recovered/Not Resolved]
  - Pancreatitis [Unknown]
  - Pancreatic cyst [Unknown]
  - Tachycardia [Unknown]

NARRATIVE: CASE EVENT DATE: 20250101
